FAERS Safety Report 11546406 (Version 2)
Quarter: 2015Q4

REPORT INFORMATION
  Report Type: Report from Study
  Country: US (occurrence: US)
  Receive Date: 20150924
  Receipt Date: 20151014
  Transmission Date: 20160304
  Serious: Yes (Hospitalization, Other)
  Sender: FDA-Public Use
  Company Number: US-GILEAD-2015-0173454

PATIENT
  Age: 78 Year
  Sex: Female

DRUGS (3)
  1. AMBRISENTAN [Suspect]
     Active Substance: AMBRISENTAN
     Indication: PULMONARY HYPERTENSION
     Dosage: 10 MG, QD
     Route: 065
     Dates: start: 20130312, end: 20150914
  2. SILDENAFIL                         /01367502/ [Concomitant]
     Active Substance: SILDENAFIL
     Dosage: 10 MG, UNK
  3. TYVASO [Concomitant]
     Active Substance: TREPROSTINIL
     Dosage: UNK
     Dates: end: 20150912

REACTIONS (4)
  - Left ventricular end-diastolic pressure increased [Unknown]
  - Pulmonary hypertension [Unknown]
  - Confusional state [Unknown]
  - Atrial pressure increased [Unknown]
